FAERS Safety Report 20032073 (Version 2)
Quarter: 2021Q4

REPORT INFORMATION
  Report Type: Spontaneous
  Country: JP (occurrence: JP)
  Receive Date: 20211103
  Receipt Date: 20211113
  Transmission Date: 20220303
  Serious: Yes (Hospitalization)
  Sender: FDA-Public Use
  Company Number: JP-Eisai-202107967_LEN-HCC_P_1

PATIENT
  Sex: Male

DRUGS (1)
  1. LENVIMA [Suspect]
     Active Substance: LENVATINIB
     Indication: Hepatocellular carcinoma
     Dosage: DOSE AND FREQUENCY NOT PROVIDED
     Route: 048

REACTIONS (4)
  - Cholecystitis [Recovered/Resolved]
  - Proteinuria [Unknown]
  - Palmar-plantar erythrodysaesthesia syndrome [Unknown]
  - Oedema [Unknown]
